FAERS Safety Report 6645767-7 (Version None)
Quarter: 2010Q1

REPORT INFORMATION
  Report Type: 
  Country: None (occurrence: None)
  Receive Date: 20100318
  Receipt Date: 20100318
  Transmission Date: 20100710
  Serious: Yes (Hospitalization)
  Sender: FDA-Public Use
  Company Number: None

PATIENT
  Age: 60 Year
  Sex: Male

DRUGS (5)
  1. GLYBURIDE AND METFORMIN HYDROCHLORIDE [Suspect]
     Indication: DIABETES MELLITUS
     Dosage: TWO TABLETS BID PO
     Route: 048
     Dates: end: 20091016
  2. HYDROCODONE BITARTRATE AND ACETAMINOPHEN [Concomitant]
  3. ATENOLOL [Concomitant]
  4. ZETIA [Suspect]
  5. WARFARIN SODIUM [Concomitant]

REACTIONS (6)
  - ANAEMIA [None]
  - CONFUSIONAL STATE [None]
  - DISORIENTATION [None]
  - HYPOGLYCAEMIA [None]
  - HYPOPHAGIA [None]
  - WEIGHT DECREASED [None]
